FAERS Safety Report 22009744 (Version 1)
Quarter: 2023Q1

REPORT INFORMATION
  Report Type: Spontaneous
  Country: US (occurrence: US)
  Receive Date: 20230220
  Receipt Date: 20230220
  Transmission Date: 20230417
  Serious: Yes (Other)
  Sender: FDA-Public Use
  Company Number: US-ASTELLAS-2023US005549

PATIENT
  Sex: Male

DRUGS (1)
  1. XTANDI [Suspect]
     Active Substance: ENZALUTAMIDE
     Indication: Product used for unknown indication
     Dosage: UNK UNK, UNKNOWN FREQ.
     Route: 065

REACTIONS (1)
  - Short-bowel syndrome [Unknown]
